FAERS Safety Report 7015071-6 (Version None)
Quarter: 2010Q3

REPORT INFORMATION
  Report Type: 
  Country: None (occurrence: None)
  Receive Date: 20100927
  Receipt Date: 20100920
  Transmission Date: 20110219
  Serious: Yes (Other)
  Sender: FDA-Public Use
  Company Number: US-SANOFI-AVENTIS-2010SA043608

PATIENT
  Age: 78 Year
  Sex: Female
  Weight: 103.4 kg

DRUGS (15)
  1. MULTAQ [Suspect]
     Route: 048
     Dates: start: 20100716, end: 20100723
  2. COREG [Concomitant]
  3. SINEMET [Concomitant]
  4. LORTAB [Concomitant]
  5. ZETIA [Concomitant]
  6. SYNTHROID [Concomitant]
  7. ASPIRIN [Concomitant]
  8. OMEPRAZOLE [Concomitant]
  9. REMERON [Concomitant]
  10. HUMULIN R [Concomitant]
  11. PRAVACHOL [Concomitant]
  12. LORAZEPAM [Concomitant]
  13. MOBIC [Concomitant]
  14. HUMULIN N [Concomitant]
  15. POTASSIUM CHLORIDE [Concomitant]

REACTIONS (3)
  - CARDIAC FAILURE [None]
  - OEDEMA PERIPHERAL [None]
  - TINNITUS [None]
